FAERS Safety Report 21501136 (Version 1)
Quarter: 2022Q4

REPORT INFORMATION
  Report Type: Report from Study
  Country: US (occurrence: US)
  Receive Date: 20221025
  Receipt Date: 20221025
  Transmission Date: 20230112
  Serious: Yes (Other)
  Sender: FDA-Public Use
  Company Number: US-ABBVIE-4171075

PATIENT

DRUGS (1)
  1. SKYRIZI [Suspect]
     Active Substance: RISANKIZUMAB-RZAA
     Indication: Psoriasis
     Dosage: SKYRIZI 150MG/ML?INJECT 150MG (1 PEN) SUBCUTANEOUSLY EVERY 12 WEEKS, STARTING ON WEEK 16
     Route: 058

REACTIONS (1)
  - Skin cancer [Unknown]
